FAERS Safety Report 25399919 (Version 1)
Quarter: 2025Q2

REPORT INFORMATION
  Report Type: Report from Study
  Country: US (occurrence: US)
  Receive Date: 20250605
  Receipt Date: 20250605
  Transmission Date: 20250717
  Serious: Yes (Other)
  Sender: ABBVIE
  Company Number: US-ABBVIE-6311054

PATIENT
  Sex: Female

DRUGS (1)
  1. HUMIRA [Suspect]
     Active Substance: ADALIMUMAB
     Indication: Product used for unknown indication
     Route: 058
     Dates: end: 202408

REACTIONS (3)
  - Gastrointestinal haemorrhage [Recovered/Resolved]
  - Fungal oesophagitis [Recovered/Resolved]
  - Drug ineffective [Recovered/Resolved]
